FAERS Safety Report 17577978 (Version 2)
Quarter: 2020Q2

REPORT INFORMATION
  Report Type: Spontaneous
  Country: US (occurrence: US)
  Receive Date: 20200324
  Receipt Date: 20200408
  Transmission Date: 20200713
  Serious: Yes (Hospitalization)
  Sender: FDA-Public Use
  Company Number: US-VIFOR (INTERNATIONAL) INC.-VIT-2020-04737

PATIENT
  Age: 83 Year
  Sex: Female
  Weight: 56.75 kg

DRUGS (17)
  1. AZMACORT [Concomitant]
     Active Substance: TRIAMCINOLONE ACETONIDE
  2. LASIX [Concomitant]
     Active Substance: FUROSEMIDE
  3. TOPROL XL [Concomitant]
     Active Substance: METOPROLOL SUCCINATE
  4. NASONEX [Concomitant]
     Active Substance: MOMETASONE FUROATE
  5. COUMADIN [Concomitant]
     Active Substance: WARFARIN SODIUM
  6. CELEBREX [Concomitant]
     Active Substance: CELECOXIB
  7. ZETIA [Concomitant]
     Active Substance: EZETIMIBE
  8. CALCARB 600 [Concomitant]
  9. VELTASSA [Suspect]
     Active Substance: PATIROMER
     Indication: HYPERKALAEMIA
     Route: 048
     Dates: start: 20181211
  10. ALLEGRA [Concomitant]
     Active Substance: FEXOFENADINE HYDROCHLORIDE
  11. PREVACID [Concomitant]
     Active Substance: LANSOPRAZOLE
  12. GLYBURIDE. [Concomitant]
     Active Substance: GLYBURIDE
  13. ZOCOR [Concomitant]
     Active Substance: SIMVASTATIN
  14. LEXAPRO [Concomitant]
     Active Substance: ESCITALOPRAM OXALATE
  15. LOVENOX [Concomitant]
     Active Substance: ENOXAPARIN SODIUM
  16. ACTONEL [Concomitant]
     Active Substance: RISEDRONATE SODIUM
  17. PRINIVIL [Concomitant]
     Active Substance: LISINOPRIL

REACTIONS (2)
  - Cardiac failure congestive [Unknown]
  - Product dose omission [Unknown]

NARRATIVE: CASE EVENT DATE: 202003
